FAERS Safety Report 6856392-7 (Version None)
Quarter: 2010Q3

REPORT INFORMATION
  Report Type: 
  Country: None (occurrence: None)
  Receive Date: 20100719
  Receipt Date: 20100707
  Transmission Date: 20110219
  Serious: Yes (Hospitalization, Other)
  Sender: FDA-Public Use
  Company Number: US-ROCHE-665913

PATIENT
  Sex: Male
  Weight: 65.8 kg

DRUGS (13)
  1. ACCUTANE [Suspect]
     Indication: ACNE
     Route: 065
     Dates: start: 20010125, end: 20020607
  2. ACCUTANE [Suspect]
     Route: 065
     Dates: start: 20020814, end: 20020929
  3. AMNESTEEM [Suspect]
     Indication: ACNE
     Route: 065
     Dates: start: 20021101, end: 20030101
  4. AMNESTEEM [Suspect]
     Route: 065
     Dates: start: 20031111, end: 20040123
  5. SOTRET [Suspect]
     Indication: ACNE
     Route: 065
     Dates: start: 20040101
  6. SOTRET [Suspect]
     Route: 065
     Dates: start: 20040617, end: 20041101
  7. SOTRET [Suspect]
     Route: 065
     Dates: start: 20050105
  8. SOTRET [Suspect]
     Route: 065
     Dates: start: 20051109
  9. SOTRET [Suspect]
     Route: 065
     Dates: start: 20060209, end: 20060807
  10. ADVIL LIQUI-GELS [Concomitant]
  11. KENALOG [Concomitant]
     Indication: ACNE
     Route: 030
  12. TRIAMCINOLONE [Concomitant]
     Indication: ACNE
  13. ATARAX [Concomitant]
     Indication: ACNE
     Dosage: RECEIVED EVERY NIGHT

REACTIONS (14)
  - ACNE [None]
  - ARTHRITIS [None]
  - BACK PAIN [None]
  - COLITIS ULCERATIVE [None]
  - EPISTAXIS [None]
  - ILEUS [None]
  - INFLAMMATORY BOWEL DISEASE [None]
  - LOWER GASTROINTESTINAL HAEMORRHAGE [None]
  - NECK INJURY [None]
  - PELVIC ABSCESS [None]
  - PRURITUS [None]
  - RHEUMATOID ARTHRITIS [None]
  - SACROILIITIS [None]
  - SMALL INTESTINAL OBSTRUCTION [None]
